FAERS Safety Report 4515499-X (Version None)
Quarter: 2004Q4

REPORT INFORMATION
  Report Type: 
  Country: None (occurrence: None)
  Receive Date: 20041126
  Receipt Date: 20041115
  Transmission Date: 20050328
  Serious: Yes (Congenital Anomaly)
  Sender: FDA-Public Use
  Company Number: 2004093177

PATIENT
  Sex: Male
  Weight: 3.7286 kg

DRUGS (1)
  1. ZOLOFT [Suspect]
     Indication: DEPRESSION
     Dosage: 50 MG (1 IN 1 D), ORAL
     Route: 048

REACTIONS (4)
  - BREECH PRESENTATION [None]
  - CAESAREAN SECTION [None]
  - CONGENITAL MACROCEPHALY [None]
  - DRUG EXPOSURE DURING PREGNANCY [None]
